FAERS Safety Report 6954791-6 (Version None)
Quarter: 2010Q3

REPORT INFORMATION
  Report Type: 
  Country: None (occurrence: None)
  Receive Date: 20100830
  Receipt Date: 20100825
  Transmission Date: 20110219
  Serious: Yes (Other)
  Sender: FDA-Public Use
  Company Number: US-ASTRAZENECA-2007UW21492

PATIENT
  Age: 15729 Day
  Sex: Male
  Weight: 153.8 kg

DRUGS (27)
  1. SEROQUEL [Suspect]
     Indication: ANXIETY
     Dosage: 25 - 200 MG
     Route: 048
     Dates: start: 20050101, end: 20070101
  2. SEROQUEL [Suspect]
     Indication: DEPRESSION
     Dosage: 25 - 200 MG
     Route: 048
     Dates: start: 20050101, end: 20070101
  3. SEROQUEL [Suspect]
     Indication: INSOMNIA
     Dosage: 25 - 200 MG
     Route: 048
     Dates: start: 20050101, end: 20070101
  4. SEROQUEL [Suspect]
     Dosage: 100 MG
     Route: 048
     Dates: start: 20050523
  5. SEROQUEL [Suspect]
     Dosage: 100 MG
     Route: 048
     Dates: start: 20050523
  6. SEROQUEL [Suspect]
     Dosage: 100 MG
     Route: 048
     Dates: start: 20050523
  7. GABAPENTIN [Concomitant]
  8. CRESTOR [Concomitant]
     Dates: start: 20070523
  9. LEXAPRO [Concomitant]
  10. TESTRED [Concomitant]
  11. LIPITOR [Concomitant]
     Dosage: 20-40 MG
     Dates: end: 20060712
  12. TARKA [Concomitant]
     Dosage: 4/240 MG EVERYDAY
  13. AMITRIPTYLINE HCL [Concomitant]
  14. TRAZODONE HCL [Concomitant]
  15. EFFEXOR [Concomitant]
     Dates: start: 20060725
  16. LYRICA [Concomitant]
  17. METFORMIN [Concomitant]
     Dates: start: 20061019, end: 20070918
  18. TRIGLIDE [Concomitant]
  19. HYDROXYZ HCL [Concomitant]
  20. IBUPROFEN [Concomitant]
  21. AMARYL [Concomitant]
     Dosage: 2 MG 1/2 EVERY MORNING
  22. NIZORAL [Concomitant]
  23. PRAVACHOL [Concomitant]
     Dates: end: 20071008
  24. MOBIC [Concomitant]
  25. VYTORIN [Concomitant]
     Dosage: 10/40 DAILY
     Route: 048
     Dates: start: 20060712, end: 20070523
  26. SOLIAN [Concomitant]
  27. THORAZINE [Concomitant]

REACTIONS (13)
  - BLOOD CHOLESTEROL INCREASED [None]
  - BLOOD TRIGLYCERIDES INCREASED [None]
  - DIABETES MELLITUS INADEQUATE CONTROL [None]
  - DIABETIC COMA [None]
  - DIABETIC COMPLICATION [None]
  - HYPERGLYCAEMIA [None]
  - HYPERLIPIDAEMIA [None]
  - HYPERTRIGLYCERIDAEMIA [None]
  - NECK INJURY [None]
  - NEUROPATHY PERIPHERAL [None]
  - OBESITY [None]
  - ROTATOR CUFF SYNDROME [None]
  - TYPE 2 DIABETES MELLITUS [None]
